FAERS Safety Report 10774764 (Version 1)
Quarter: 2015Q1

REPORT INFORMATION
  Report Type: Other
  Country: US (occurrence: US)
  Receive Date: 20150209
  Receipt Date: 20150209
  Transmission Date: 20150721
  Serious: No
  Sender: FDA-Public Use
  Company Number: US-ACORDA-ACO_108543_2015

PATIENT
  Sex: Male
  Weight: 106.12 kg

DRUGS (6)
  1. AMPYRA [Suspect]
     Active Substance: DALFAMPRIDINE
     Indication: MULTIPLE SCLEROSIS
     Dosage: 10 MG, EVERY MORNING
     Route: 048
     Dates: start: 201409
  2. LOSARTAN [Concomitant]
     Active Substance: LOSARTAN
     Indication: PRODUCT USED FOR UNKNOWN INDICATION
     Dosage: 50MG, UNK
     Route: 065
  3. AMANTADINE HCL [Concomitant]
     Active Substance: AMANTADINE HYDROCHLORIDE
     Indication: PRODUCT USED FOR UNKNOWN INDICATION
     Dosage: 100MG, UNK
     Route: 065
  4. BACLOFEN. [Concomitant]
     Active Substance: BACLOFEN
     Indication: PRODUCT USED FOR UNKNOWN INDICATION
     Dosage: 20MG, UNK
     Route: 065
  5. DICLOFENAC SODIUM. [Concomitant]
     Active Substance: DICLOFENAC SODIUM
     Indication: PRODUCT USED FOR UNKNOWN INDICATION
     Dosage: 75MG, UNK
     Route: 065
  6. METHIMAZOLE. [Concomitant]
     Active Substance: METHIMAZOLE
     Indication: PRODUCT USED FOR UNKNOWN INDICATION
     Dosage: 10MG, UNK
     Route: 065

REACTIONS (7)
  - Depression [Unknown]
  - Muscle spasms [Unknown]
  - Sleep disorder [Unknown]
  - Hernia repair [Unknown]
  - Nephrolithiasis [Unknown]
  - Activities of daily living impaired [Unknown]
  - Memory impairment [Unknown]

NARRATIVE: CASE EVENT DATE: 2014
